FAERS Safety Report 6658186-4 (Version None)
Quarter: 2010Q1

REPORT INFORMATION
  Report Type: 
  Country: None (occurrence: None)
  Receive Date: 20100330
  Receipt Date: 20100326
  Transmission Date: 20100710
  Serious: Yes (Other)
  Sender: FDA-Public Use
  Company Number: B0643571A

PATIENT
  Sex: Male

DRUGS (3)
  1. AVOLVE [Suspect]
     Indication: BENIGN PROSTATIC HYPERPLASIA
     Dosage: .5MG PER DAY
     Route: 048
  2. EVIPROSTAT [Concomitant]
     Route: 048
  3. UNKNOWN DRUG [Concomitant]
     Route: 048

REACTIONS (1)
  - GENITAL HAEMORRHAGE [None]
